FAERS Safety Report 4498518-9 (Version None)
Quarter: 2004Q4

REPORT INFORMATION
  Report Type: 
  Country: None (occurrence: None)
  Receive Date: 20041105
  Receipt Date: 20041021
  Transmission Date: 20050328
  Serious: Yes (Death)
  Sender: FDA-Public Use
  Company Number: A03200403532

PATIENT
  Age: 61 Year
  Sex: Female
  Weight: 41.2773 kg

DRUGS (10)
  1. ELOXATIN [Suspect]
     Indication: COLON CANCER
     Dosage: 85 MG/M2 Q2W - INTRAVENOUS NOS
     Route: 042
     Dates: start: 20040729, end: 20040729
  2. ELOXATIN [Suspect]
     Indication: COLON CANCER STAGE III
     Dosage: 85 MG/M2 Q2W - INTRAVENOUS NOS
     Route: 042
     Dates: start: 20040729, end: 20040729
  3. FLUOROURACIL [Suspect]
     Indication: COLON CANCER
     Dosage: 400 MG BOLUS DOSE, THEN 2880 MG CONTINUOUS INFUSION - INTRAVENOUS NOS
     Route: 042
  4. FLUOROURACIL [Suspect]
     Indication: COLON CANCER STAGE III
     Dosage: 400 MG BOLUS DOSE, THEN 2880 MG CONTINUOUS INFUSION - INTRAVENOUS NOS
     Route: 042
  5. LEUCOVORIN - SOLUTION - UNIT DOSE  : UNKNOWN [Suspect]
     Indication: COLON CANCER
     Dosage: INTRAVENOUS NOS
     Route: 042
  6. LEUCOVORIN - SOLUTION - UNIT DOSE  : UNKNOWN [Suspect]
     Indication: COLON CANCER STAGE III
     Dosage: INTRAVENOUS NOS
     Route: 042
  7. LEVOTHYROXINE SODIUM [Concomitant]
  8. LOSARTAN POTASSIUM [Concomitant]
  9. ATORVASTATIN CALCIUM [Concomitant]
  10. LOPERAMIDE HYDROCHLORIDE [Concomitant]

REACTIONS (5)
  - DEHYDRATION [None]
  - HAEMOGLOBIN DECREASED [None]
  - NEUTROPENIC SEPSIS [None]
  - PLATELET COUNT DECREASED [None]
  - RENAL FAILURE [None]
